FAERS Safety Report 14024848 (Version 1)
Quarter: 2017Q3

REPORT INFORMATION
  Report Type: Other
  Country: CA (occurrence: CA)
  Receive Date: 20170929
  Receipt Date: 20170929
  Transmission Date: 20171128
  Serious: Yes (Hospitalization, Other)
  Sender: FDA-Public Use
  Company Number: CA-APOTEX-2017AP018911

PATIENT
  Age: 88 Year
  Sex: Male

DRUGS (2)
  1. APO-LITHIUM CARBONATE [Suspect]
     Active Substance: LITHIUM CARBONATE
     Indication: PRODUCT USED FOR UNKNOWN INDICATION
     Dosage: 2 DF, QD
     Route: 048
  2. PMS-LITHIUM CARBONATE [Suspect]
     Active Substance: LITHIUM CARBONATE
     Indication: PRODUCT USED FOR UNKNOWN INDICATION
     Dosage: 2 DF, QD, CAP 150MG
     Route: 048

REACTIONS (5)
  - Poisoning [Unknown]
  - Diarrhoea [Unknown]
  - Product substitution issue [Unknown]
  - Condition aggravated [Unknown]
  - Delirium [Unknown]
